FAERS Safety Report 7996666-X (Version None)
Quarter: 2011Q4

REPORT INFORMATION
  Report Type: 
  Country: None (occurrence: None)
  Receive Date: 20111221
  Receipt Date: 20111215
  Transmission Date: 20120403
  Serious: No
  Sender: FDA-Public Use
  Company Number: US-B.I. PHARMACEUTICALS,INC./RIDGEFIELD-2011-BP-10317BP

PATIENT
  Sex: Male

DRUGS (8)
  1. LISINOPRIL [Concomitant]
     Dosage: 5 MG
  2. PRAVASTATIN [Concomitant]
     Dosage: 40 MG
  3. CARVEDILOL [Concomitant]
     Dosage: 25 MG
  4. FUROSEMIDE [Concomitant]
     Dosage: 20 MG
  5. PRADAXA [Suspect]
     Indication: ANTICOAGULANT THERAPY
  6. WARFARIN SODIUM [Concomitant]
     Dosage: 2 MG
  7. PRADAXA [Suspect]
     Indication: ATRIAL FIBRILLATION
     Dosage: 150 MG
     Route: 048
     Dates: start: 20110101, end: 20110406
  8. DIGOXIN [Concomitant]
     Dosage: 0.125 MG

REACTIONS (5)
  - DYSPNOEA [None]
  - HEADACHE [None]
  - HEART RATE INCREASED [None]
  - VITREOUS FLOATERS [None]
  - DIZZINESS [None]
